FAERS Safety Report 5053029-7 (Version None)
Quarter: 2006Q3

REPORT INFORMATION
  Report Type: 
  Country: None (occurrence: None)
  Receive Date: 20060712
  Receipt Date: 20060630
  Transmission Date: 20061208
  Serious: Yes (Hospitalization)
  Sender: FDA-Public Use
  Company Number: 2005105632

PATIENT
  Age: 48 Year
  Sex: Male
  Weight: 83.9154 kg

DRUGS (1)
  1. BEXTRA [Suspect]
     Indication: RHEUMATOID ARTHRITIS
     Dosage: 10 MG
     Dates: end: 20030701

REACTIONS (13)
  - ABNORMAL BEHAVIOUR [None]
  - ARTERIOSCLEROSIS [None]
  - BOREDOM [None]
  - CEREBROVASCULAR ACCIDENT [None]
  - COGNITIVE DISORDER [None]
  - DEPRESSION [None]
  - DYSARTHRIA [None]
  - DYSLEXIA [None]
  - DYSPHASIA [None]
  - HYPERSOMNIA [None]
  - HYPOTONIA [None]
  - MEMORY IMPAIRMENT [None]
  - MUSCLE ATROPHY [None]
